FAERS Safety Report 7814385-7 (Version None)
Quarter: 2011Q4

REPORT INFORMATION
  Report Type: 
  Country: None (occurrence: None)
  Receive Date: 20111014
  Receipt Date: 20111003
  Transmission Date: 20120403
  Serious: Yes (Other)
  Sender: FDA-Public Use
  Company Number: PHHY2011CA88152

PATIENT

DRUGS (4)
  1. DIURETICS [Concomitant]
  2. ALISKIREN [Suspect]
     Dosage: 300 MG, UNK
  3. CALCIUM CHANNEL BLOCKERS [Concomitant]
  4. ANGIOTENSIN CONVERTING ENZYME BLOCKERS [Concomitant]

REACTIONS (2)
  - URINE ALBUMIN/CREATININE RATIO INCREASED [None]
  - NEPHROPATHY [None]
